FAERS Safety Report 9779253 (Version 1)
Quarter: 2013Q4

REPORT INFORMATION
  Report Type: Spontaneous
  Country: FR (occurrence: FR)
  Receive Date: 20131223
  Receipt Date: 20131223
  Transmission Date: 20140711
  Serious: Yes (Hospitalization)
  Sender: FDA-Public Use
  Company Number: FR-ASTRAZENECA-2013SE92476

PATIENT
  Age: 16118 Day
  Sex: Male

DRUGS (5)
  1. BRILIQUE [Suspect]
     Indication: ISCHAEMIC HEART DISEASE PROPHYLAXIS
     Route: 048
     Dates: start: 20130415
  2. KARDEGIC [Suspect]
     Route: 048
     Dates: start: 20130415
  3. LOPRESSOR [Concomitant]
  4. INEXIUM [Concomitant]
  5. TAHOR [Concomitant]

REACTIONS (2)
  - Anaemia [Unknown]
  - Haemorrhagic diathesis [Recovered/Resolved]
